FAERS Safety Report 5054118-3 (Version None)
Quarter: 2006Q3

REPORT INFORMATION
  Report Type: 
  Country: None (occurrence: None)
  Receive Date: 20060718
  Receipt Date: 20060622
  Transmission Date: 20061208
  Serious: Yes (Other)
  Sender: FDA-Public Use
  Company Number: GB-NOVOPROD-254354

PATIENT
  Age: 71 Year
  Sex: Male
  Weight: 62 kg

DRUGS (6)
  1. NOVORAPID PENFILL [Suspect]
     Indication: INSULIN-REQUIRING TYPE II DIABETES MELLITUS
     Dosage: 6 IU, QID
     Route: 058
     Dates: start: 20060531, end: 20060621
  2. NOVORAPID PENFILL [Suspect]
     Dosage: 4 IU, QD
     Route: 058
     Dates: start: 20060621
  3. INSULIN GLARGINE [Concomitant]
     Dosage: 48 IU, QD
     Route: 058
     Dates: start: 20051006
  4. GLUCOFORMIN [Concomitant]
     Dosage: 850 G, BID
     Route: 048
     Dates: start: 20000607
  5. LISINOPRIL [Concomitant]
     Dosage: 10 MG, QD
     Route: 048
     Dates: start: 20050321
  6. SIMVASTATIN [Concomitant]
     Dosage: 10 MG, BID
     Route: 048
     Dates: start: 19990304

REACTIONS (2)
  - DIZZINESS [None]
  - PALPITATIONS [None]
